FAERS Safety Report 24981608 (Version 1)
Quarter: 2025Q1

REPORT INFORMATION
  Report Type: Report from Study
  Country: CA (occurrence: CA)
  Receive Date: 20250218
  Receipt Date: 20250218
  Transmission Date: 20250409
  Serious: Yes (Hospitalization)
  Sender: ABBVIE
  Company Number: CA-ABBVIE-6129417

PATIENT
  Age: 61 Year
  Sex: Male
  Weight: 139 kg

DRUGS (3)
  1. SKYRIZI [Suspect]
     Active Substance: RISANKIZUMAB-RZAA
     Indication: Psoriasis
     Route: 058
     Dates: end: 20250204
  2. SKYRIZI [Suspect]
     Active Substance: RISANKIZUMAB-RZAA
     Indication: Crohn^s disease
  3. METHOTREXATE [Concomitant]
     Active Substance: METHOTREXATE
     Indication: Product used for unknown indication

REACTIONS (13)
  - Contusion [Unknown]
  - Fall [Unknown]
  - COVID-19 pneumonia [Unknown]
  - Cellulitis [Unknown]
  - Arthralgia [Unknown]
  - Aphthous ulcer [Unknown]
  - Diabetes mellitus [Unknown]
  - Skin ulcer [Unknown]
  - Feeling abnormal [Unknown]
  - Abdominal pain [Unknown]
  - Hypoacusis [Unknown]
  - Haemorrhage [Unknown]
  - Polyp [Unknown]

NARRATIVE: CASE EVENT DATE: 20240919
